FAERS Safety Report 4821902-8 (Version None)
Quarter: 2005Q4

REPORT INFORMATION
  Report Type: 
  Country: None (occurrence: None)
  Receive Date: 20051107
  Receipt Date: 20050809
  Transmission Date: 20060501
  Serious: Yes (Hospitalization, Disabling)
  Sender: FDA-Public Use
  Company Number: US-ROCHE-413625

PATIENT
  Age: 74 Year
  Sex: Female
  Weight: 74.2 kg

DRUGS (6)
  1. IBANDRONIC ACID [Suspect]
     Indication: OSTEOPOROSIS POSTMENOPAUSAL
     Dosage: LAST DOSE PRIOR TO EVENT ADMINISTERED ON 11 JULY 2005
     Route: 048
     Dates: start: 20050310, end: 20050729
  2. ASPIRIN [Suspect]
     Indication: DRUG USE FOR UNKNOWN INDICATION
     Route: 065
     Dates: start: 19980615, end: 20050729
  3. SYNTHROID [Concomitant]
     Dates: start: 19900615
  4. VALSARTAN [Concomitant]
     Dates: start: 20031010
  5. HYDROCHLOROTHIAZIDE [Concomitant]
     Dates: start: 20041110, end: 20050729
  6. OSCAL [Concomitant]
     Dosage: TOTAL DAILY DOSE WAS REPORTED AS 1000MG/400IU
     Dates: start: 20050310

REACTIONS (4)
  - DEHYDRATION [None]
  - HAEMORRHAGE [None]
  - HEPATIC NEOPLASM MALIGNANT [None]
  - MELAENA [None]
